FAERS Safety Report 6209955-6 (Version None)
Quarter: 2009Q2

REPORT INFORMATION
  Report Type: 
  Country: None (occurrence: None)
  Receive Date: 20090601
  Receipt Date: 20090525
  Transmission Date: 20091009
  Serious: Yes (Hospitalization)
  Sender: FDA-Public Use
  Company Number: CN-ASTRAZENECA-2009AP03126

PATIENT
  Age: 35 Year
  Sex: Female
  Weight: 65 kg

DRUGS (1)
  1. LIDOCAINE [Suspect]
     Indication: ANAESTHESIA
     Route: 037
     Dates: start: 20070501, end: 20070501

REACTIONS (1)
  - NEUROLOGICAL SYMPTOM [None]
